FAERS Safety Report 24121168 (Version 1)
Quarter: 2024Q3

REPORT INFORMATION
  Report Type: Report from Study
  Country: US (occurrence: None)
  Receive Date: 20240722
  Receipt Date: 20240722
  Transmission Date: 20241016
  Serious: Yes (Other)
  Sender: ASTRAZENECA
  Company Number: 2020SE47549

PATIENT
  Sex: Female

DRUGS (13)
  1. TAGRISSO [Suspect]
     Active Substance: OSIMERTINIB
     Indication: Lung carcinoma cell type unspecified stage 0
     Route: 048
  2. CALCIUM [Concomitant]
     Active Substance: CALCIUM
  3. ENTECAVIR [Concomitant]
     Active Substance: ENTECAVIR
  4. MAGNESIUM MALATE [Concomitant]
     Active Substance: MAGNESIUM MALATE
  5. ZOFRAN [Concomitant]
     Active Substance: ONDANSETRON HYDROCHLORIDE
  6. PROCHLORPERAZINE MALEATE [Concomitant]
     Active Substance: PROCHLORPERAZINE MALEATE
  7. ZANTAC [Concomitant]
     Active Substance: RANITIDINE HYDROCHLORIDE
  8. OXYBUTYNIN CHLORIDE [Concomitant]
     Active Substance: OXYBUTYNIN CHLORIDE
  9. ATROPINE\DIPHENOXYLATE [Concomitant]
     Active Substance: ATROPINE\DIPHENOXYLATE
  10. VITAMINS [Concomitant]
     Active Substance: VITAMINS
  11. LANSOPRAZOLE [Concomitant]
     Active Substance: LANSOPRAZOLE
  12. DEXAMETHASONE [Concomitant]
     Active Substance: DEXAMETHASONE
  13. VITAMIN B2 [Concomitant]
     Active Substance: RIBOFLAVIN

REACTIONS (4)
  - Blindness unilateral [Unknown]
  - Cough [Unknown]
  - Decreased appetite [Unknown]
  - Nervousness [Unknown]
